FAERS Safety Report 24223070 (Version 3)
Quarter: 2024Q3

REPORT INFORMATION
  Report Type: Report from Study
  Country: US (occurrence: US)
  Receive Date: 20240819
  Receipt Date: 20240920
  Transmission Date: 20241016
  Serious: Yes (Hospitalization)
  Sender: EXELIXIS
  Company Number: US-EXELIXIS-CABO-24079371

PATIENT
  Age: 59 Year
  Sex: Male
  Weight: 73.887 kg

DRUGS (2)
  1. CABOMETYX [Suspect]
     Active Substance: CABOZANTINIB S-MALATE
     Indication: Hepatic cancer
     Dosage: 60 MG, QD
     Route: 048
     Dates: start: 20240524
  2. CABOMETYX [Suspect]
     Active Substance: CABOZANTINIB S-MALATE
     Dosage: 40 MG, QD
     Route: 048

REACTIONS (8)
  - Hepatic encephalopathy [Unknown]
  - Fatigue [Unknown]
  - Vomiting [Unknown]
  - Nausea [Unknown]
  - Abdominal pain upper [Unknown]
  - Skin infection [Unknown]
  - Penile oedema [Unknown]
  - Oedema peripheral [Unknown]

NARRATIVE: CASE EVENT DATE: 20240710
